FAERS Safety Report 8860172 (Version 1)
Quarter: 2012Q4

REPORT INFORMATION
  Report Type: 
  Country: US (occurrence: US)
  Receive Date: 20121025
  Receipt Date: 20121025
  Transmission Date: 20130627
  Serious: No
  Sender: FDA-Public Use
  Company Number: US-BIOGENIDEC-2012BI047190

PATIENT
  Age: 31 Year
  Sex: Female

DRUGS (2)
  1. AVONEX [Suspect]
     Indication: MULTIPLE SCLEROSIS
     Route: 030
     Dates: start: 20090328
  2. AVONEX [Suspect]
     Indication: MULTIPLE SCLEROSIS
     Route: 030
     Dates: start: 20120407

REACTIONS (5)
  - Tremor [Not Recovered/Not Resolved]
  - Influenza like illness [Unknown]
  - Anxiety [Not Recovered/Not Resolved]
  - Depression [Recovered/Resolved]
  - Decreased appetite [Not Recovered/Not Resolved]
